FAERS Safety Report 5034785-0 (Version None)
Quarter: 2006Q2

REPORT INFORMATION
  Report Type: 
  Country: None (occurrence: None)
  Receive Date: 20060509
  Receipt Date: 20060228
  Transmission Date: 20061013
  Serious: Yes (Death, Other)
  Sender: FDA-Public Use
  Company Number: US200511003405

PATIENT
  Age: 15 Year
  Sex: Male
  Weight: 217 kg

DRUGS (3)
  1. PROZAC [Suspect]
     Indication: DEPRESSION
     Dosage: 20 MG
     Dates: start: 20030928
  2. BUPROPIN (BUPROPION) [Concomitant]
  3. RISPERIDONE [Concomitant]

REACTIONS (3)
  - COMPLETED SUICIDE [None]
  - OVERDOSE [None]
  - PULMONARY OEDEMA [None]
